FAERS Safety Report 6133286-6 (Version None)
Quarter: 2009Q1

REPORT INFORMATION
  Report Type: 
  Country: None (occurrence: None)
  Receive Date: 20090326
  Receipt Date: 20090318
  Transmission Date: 20090719
  Serious: Yes (Other)
  Sender: FDA-Public Use
  Company Number: US-NOVOPROD-285391

PATIENT
  Sex: Female

DRUGS (2)
  1. ACTIVELLA 0.5/0.1 MG [Suspect]
     Indication: MENOPAUSAL SYMPTOMS
     Route: 048
     Dates: start: 20080801, end: 20080801
  2. ACTIVELLA 0.5/0.1 MG [Suspect]
     Route: 048
     Dates: start: 20081001

REACTIONS (1)
  - HEPATIC STEATOSIS [None]
